FAERS Safety Report 7105674-2 (Version None)
Quarter: 2010Q4

REPORT INFORMATION
  Report Type: 
  Country: None (occurrence: None)
  Receive Date: 20101116
  Receipt Date: 20101109
  Transmission Date: 20110411
  Serious: Yes (Hospitalization)
  Sender: FDA-Public Use
  Company Number: DE-ABBOTT-10P-062-0682468-00

PATIENT
  Sex: Female
  Weight: 48 kg

DRUGS (9)
  1. HUMIRA [Suspect]
     Indication: RHEUMATOID ARTHRITIS
     Route: 058
     Dates: start: 20080328, end: 20100901
  2. ARAVA [Concomitant]
     Indication: RHEUMATOID ARTHRITIS
  3. ENBREL [Concomitant]
     Indication: RHEUMATOID ARTHRITIS
     Dates: start: 20100928
  4. MICTONORM UNO 30 [Concomitant]
     Indication: PRODUCT USED FOR UNKNOWN INDICATION
  5. OLMETEC [Concomitant]
     Indication: PRODUCT USED FOR UNKNOWN INDICATION
  6. ESIDRIX [Concomitant]
     Indication: PRODUCT USED FOR UNKNOWN INDICATION
  7. MTX [Concomitant]
     Indication: RHEUMATOID ARTHRITIS
     Dates: end: 20100901
  8. FOLSAN [Concomitant]
     Indication: OSTEOPOROSIS
     Dates: end: 20100901
  9. FOSAMAX [Concomitant]
     Indication: PRODUCT USED FOR UNKNOWN INDICATION
     Dates: end: 20100901

REACTIONS (6)
  - BRONCHITIS [None]
  - BRONCHITIS BACTERIAL [None]
  - GENERAL PHYSICAL HEALTH DETERIORATION [None]
  - MALNUTRITION [None]
  - MOUTH ULCERATION [None]
  - PSEUDOMONAS BRONCHITIS [None]
